FAERS Safety Report 13159984 (Version 2)
Quarter: 2017Q1

REPORT INFORMATION
  Report Type: Report from Study
  Country: None (occurrence: DK)
  Receive Date: 20170127
  Receipt Date: 20170215
  Transmission Date: 20170428
  Serious: Yes (Hospitalization)
  Sender: FDA-Public Use
  Company Number: DK-ABBVIE-17P-044-1849614-00

PATIENT
  Age: 77 Year
  Sex: Male
  Weight: 76 kg

DRUGS (6)
  1. ELTROXIN [Concomitant]
     Active Substance: LEVOTHYROXINE
     Indication: HYPOTHYROIDISM
     Dosage: 100
     Route: 048
     Dates: start: 20140430
  2. NIVESTIM [Concomitant]
     Active Substance: FILGRASTIM
     Indication: CYTOPENIA
     Route: 048
     Dates: start: 20161021
  3. ALLOPURINOL. [Concomitant]
     Active Substance: ALLOPURINOL
     Indication: HYPERURICAEMIA
     Dosage: 300
     Route: 048
     Dates: start: 20160829
  4. VENETOCLAX [Suspect]
     Active Substance: VENETOCLAX
     Indication: CHRONIC LYMPHOCYTIC LEUKAEMIA
     Route: 048
     Dates: start: 20160829
  5. METOPROLOLSUCCINAT [Concomitant]
     Active Substance: METOPROLOL SUCCINATE
     Indication: ATRIAL FIBRILLATION
     Route: 048
     Dates: start: 20130929
  6. SULFOTRIM [Concomitant]
     Indication: PROPHYLAXIS
     Route: 048
     Dates: start: 20151012

REACTIONS (6)
  - Enterococcal bacteraemia [Unknown]
  - Hepatic enzyme increased [Recovering/Resolving]
  - Pyrexia [Not Recovered/Not Resolved]
  - C-reactive protein increased [Unknown]
  - Hepatic enzyme increased [Not Recovered/Not Resolved]
  - Pyrexia [Recovering/Resolving]

NARRATIVE: CASE EVENT DATE: 20161111
